FAERS Safety Report 22044969 (Version 1)
Quarter: 2023Q1

REPORT INFORMATION
  Report Type: Spontaneous
  Country: US (occurrence: US)
  Receive Date: 20230228
  Receipt Date: 20230228
  Transmission Date: 20230418
  Serious: No
  Sender: FDA-Public Use
  Company Number: US-PFIZER INC-202300081030

PATIENT
  Age: 67 Year
  Sex: Female
  Weight: 60.42 kg

DRUGS (9)
  1. PAXLOVID [Suspect]
     Active Substance: NIRMATRELVIR\RITONAVIR
     Indication: COVID-19 treatment
     Dosage: [PF-07321332 300 MG]/[RITONAVIR 100 MG]
     Dates: start: 20230221
  2. AMOXICILLIN [Concomitant]
     Active Substance: AMOXICILLIN
     Indication: Sinusitis
     Dosage: 125 MG, 2X/DAY
  3. BENZONATATE [Concomitant]
     Active Substance: BENZONATATE
     Indication: Cough
     Dosage: 100 MG, 3X/DAY(AS NEEDED FOR 7 DAYS )
  4. RETINOL [Concomitant]
     Active Substance: RETINOL
     Dosage: 1000 BTU
  5. XARELTO [Concomitant]
     Active Substance: RIVAROXABAN
     Indication: Thrombosis
     Dosage: 20 MG (AT NIGHT)
     Dates: start: 2013
  6. ZETIA [Concomitant]
     Active Substance: EZETIMIBE
     Indication: Blood cholesterol abnormal
     Dosage: 10 MG, 1X/DAY
  7. CYMBALTA [Concomitant]
     Active Substance: DULOXETINE HYDROCHLORIDE
     Dosage: 60 MG, 1X/DAY
  8. SINGULAIR [Concomitant]
     Active Substance: MONTELUKAST SODIUM
     Indication: Hypersensitivity
     Dosage: 10 MG, 1X/DAY(ONE AT NIGHT)
  9. ESTRADIOL [Concomitant]
     Active Substance: ESTRADIOL
     Dosage: 10 MG, 2X/WEEK

REACTIONS (9)
  - Insomnia [Recovering/Resolving]
  - Dry mouth [Recovering/Resolving]
  - Dysgeusia [Recovering/Resolving]
  - Feeding disorder [Unknown]
  - Abdominal pain upper [Unknown]
  - Myalgia [Unknown]
  - Pyrexia [Unknown]
  - Feeling abnormal [Unknown]
  - Confusional state [Unknown]

NARRATIVE: CASE EVENT DATE: 20230201
